FAERS Safety Report 8632581 (Version 2)
Quarter: 2014Q1

REPORT INFORMATION
  Report Type: Spontaneous
  Country: US (occurrence: None)
  Receive Date: 20120323
  Receipt Date: 20130305
  Transmission Date: 20141002
  Serious: Yes (Other)
  Sender: FDA-Public Use
  Company Number: 163-21880-11091196

PATIENT
  Age: 66 Year
  Sex: Male

DRUGS (3)
  1. REVLIMID [Suspect]
     Indication: PLASMA CELL MYELOMA
     Dosage: 5 MG, M/W/F AFTER DIALYSIS, PO
     Route: 048
     Dates: start: 20110315, end: 20110719
  2. MELPHALAN [Concomitant]
  3. PREDNISONE [Concomitant]

REACTIONS (1)
  - Pancytopenia [None]
